FAERS Safety Report 9674880 (Version 1)
Quarter: 2013Q4

REPORT INFORMATION
  Report Type: Spontaneous
  Country: US (occurrence: None)
  Receive Date: 20131106
  Receipt Date: 20131106
  Transmission Date: 20140711
  Serious: No
  Sender: FDA-Public Use
  Company Number: None

PATIENT
  Age: 77 Year
  Sex: Female
  Weight: 58.06 kg

DRUGS (7)
  1. FORTEO [Suspect]
  2. VITAMIN D3 [Concomitant]
  3. PRESERVISION [Concomitant]
  4. ST. JOSEPH ASPIRIN [Concomitant]
  5. DILANTIN [Concomitant]
  6. PHENOBARBITAL [Concomitant]
  7. CRESTOR [Concomitant]

REACTIONS (11)
  - Product taste abnormal [None]
  - Hypoaesthesia oral [None]
  - Lip swelling [None]
  - Blood pressure systolic increased [None]
  - Ventricular extrasystoles [None]
  - Asthenia [None]
  - Muscle spasms [None]
  - Pain in extremity [None]
  - Gait disturbance [None]
  - Feeling abnormal [None]
  - Back pain [None]
